FAERS Safety Report 18692123 (Version 2)
Quarter: 2021Q1

REPORT INFORMATION
  Report Type: Report from Study
  Country: EG (occurrence: EG)
  Receive Date: 20210102
  Receipt Date: 20210216
  Transmission Date: 20210419
  Serious: Yes (Other)
  Sender: FDA-Public Use
  Company Number: NVSC2020EG346274

PATIENT
  Age: 6 Year
  Sex: Male
  Weight: 21 kg

DRUGS (2)
  1. OMNITROPE [Suspect]
     Active Substance: SOMATROPIN
     Indication: GROWTH HORMONE DEFICIENCY
     Dosage: 0.25 MG, QD
     Route: 058
     Dates: start: 20190223
  2. OMNITROPE [Suspect]
     Active Substance: SOMATROPIN
     Dosage: 0.35 MG, QD (STOP DATE WAS LAST SUMMER)
     Route: 058

REACTIONS (8)
  - Drug ineffective [Recovered/Resolved]
  - Weight gain poor [Recovering/Resolving]
  - Injection site swelling [Recovered/Resolved]
  - Mood altered [Recovered/Resolved]
  - Decreased appetite [Recovering/Resolving]
  - Anaemia [Recovering/Resolving]
  - Pyrexia [Recovering/Resolving]
  - Injection site hypersensitivity [Recovered/Resolved]

NARRATIVE: CASE EVENT DATE: 202002
